FAERS Safety Report 16919523 (Version 1)
Quarter: 2019Q4

REPORT INFORMATION
  Report Type: Spontaneous
  Country: GB (occurrence: GB)
  Receive Date: 20191015
  Receipt Date: 20191015
  Transmission Date: 20200122
  Serious: Yes (Other)
  Sender: FDA-Public Use
  Company Number: GB-TEVA-2019-GB-1120777

PATIENT
  Age: 74 Year
  Sex: Female
  Weight: 57 kg

DRUGS (9)
  1. CLARITHROMYCIN. [Suspect]
     Active Substance: CLARITHROMYCIN
     Dosage: 500 MG
     Route: 002
     Dates: start: 20190905
  2. MUPIROCIN. [Concomitant]
     Active Substance: MUPIROCIN
     Dosage: APPLY, 3 DF
     Dates: start: 20190617, end: 20190624
  3. CLARITHROMYCIN. [Concomitant]
     Active Substance: CLARITHROMYCIN
     Dosage: 1 DF
     Dates: start: 20190902
  4. COLOFAC [Concomitant]
     Active Substance: MEBEVERINE HYDROCHLORIDE
     Dosage: 2 DF
     Dates: start: 20181115
  5. SIMVASTATIN. [Concomitant]
     Active Substance: SIMVASTATIN
     Dosage: NIGHT, 1 DF
     Dates: start: 20190117
  6. CITALOPRAM [Concomitant]
     Active Substance: CITALOPRAM HYDROBROMIDE
     Dosage: 1 DF
     Dates: start: 20190808, end: 20190905
  7. AMITRIPTYLINE HYDROCHLORIDE. [Concomitant]
     Active Substance: AMITRIPTYLINE HYDROCHLORIDE
     Dosage: NIGHT, 1 DF
     Dates: start: 20190117
  8. LACIDIPINE [Concomitant]
     Active Substance: LACIDIPINE
     Dosage: 1 DF
     Dates: start: 20190117
  9. ERYTHROMYCIN. [Concomitant]
     Active Substance: ERYTHROMYCIN
     Dosage: 4 DF
     Dates: start: 20190905

REACTIONS (1)
  - Dizziness [Recovered/Resolved]

NARRATIVE: CASE EVENT DATE: 20190905
